FAERS Safety Report 13264530 (Version 1)
Quarter: 2017Q1

REPORT INFORMATION
  Report Type: Spontaneous
  Country: US (occurrence: US)
  Receive Date: 20170222
  Receipt Date: 20170222
  Transmission Date: 20170428
  Serious: No
  Sender: FDA-Public Use
  Company Number: None

PATIENT
  Age: 34 Year
  Sex: Female

DRUGS (1)
  1. PROGESTERONE/SESAME OIL MDV [Suspect]
     Active Substance: PROGESTERONE
     Indication: PREGNANCY
     Dosage: 100 MG
     Route: 030
     Dates: start: 20161222, end: 20170219

REACTIONS (1)
  - Injection site rash [None]

NARRATIVE: CASE EVENT DATE: 20170217
